FAERS Safety Report 24890511 (Version 1)
Quarter: 2025Q1

REPORT INFORMATION
  Report Type: Spontaneous
  Country: US (occurrence: None)
  Receive Date: 20250126
  Receipt Date: 20250126
  Transmission Date: 20250408
  Serious: Yes (Hospitalization, Disabling)
  Sender: FDA-CTU
  Company Number: None

PATIENT
  Age: 81 Year
  Sex: Male
  Weight: 116.1 kg

DRUGS (14)
  1. CARVEDILOL [Suspect]
     Active Substance: CARVEDILOL
     Indication: Cardiac failure
     Route: 048
  2. METOPROLOL TARTRATE [Concomitant]
     Active Substance: METOPROLOL TARTRATE
  3. METOPROLOL SUCCINATE [Concomitant]
     Active Substance: METOPROLOL SUCCINATE
  4. VALSARTAN [Concomitant]
     Active Substance: VALSARTAN
  5. LIPITOR [Concomitant]
     Active Substance: ATORVASTATIN CALCIUM
  6. Ezitimebe [Concomitant]
  7. ELIQUIS [Concomitant]
     Active Substance: APIXABAN
  8. Lexipro [Concomitant]
  9. Alprazalam [Concomitant]
  10. RESTASIS [Concomitant]
     Active Substance: CYCLOSPORINE
  11. Ofloxicin [Concomitant]
  12. prednisilone [Concomitant]
  13. Areds2 vitamins [Concomitant]
  14. CANNABIDIOL [Concomitant]
     Active Substance: CANNABIDIOL

REACTIONS (8)
  - Hypotension [None]
  - Dizziness [None]
  - Nightmare [None]
  - Asthenia [None]
  - Palpitations [None]
  - Atrial fibrillation [None]
  - Nonspecific reaction [None]
  - Heart rate increased [None]

NARRATIVE: CASE EVENT DATE: 20230330
